FAERS Safety Report 7571918-6 (Version None)
Quarter: 2011Q2

REPORT INFORMATION
  Report Type: 
  Country: None (occurrence: None)
  Receive Date: 20110624
  Receipt Date: 20101124
  Transmission Date: 20111010
  Serious: No
  Sender: FDA-Public Use
  Company Number: A0896393A

PATIENT
  Age: 57 Year
  Sex: Female

DRUGS (4)
  1. PRIMIDONE [Concomitant]
  2. GABAPENTIN [Concomitant]
  3. VERAMYST [Suspect]
     Indication: ALLERGIC SINUSITIS
     Dosage: 2SPR PER DAY
     Route: 045
     Dates: start: 20080101
  4. SIMVASTATIN [Concomitant]

REACTIONS (2)
  - PRODUCT QUALITY ISSUE [None]
  - ILL-DEFINED DISORDER [None]
